FAERS Safety Report 23634733 (Version 1)
Quarter: 2024Q1

REPORT INFORMATION
  Report Type: Spontaneous
  Country: SE (occurrence: SE)
  Receive Date: 20240315
  Receipt Date: 20240315
  Transmission Date: 20240409
  Serious: Yes (Hospitalization)
  Sender: FDA-Public Use
  Company Number: None

PATIENT
  Age: 61 Year
  Sex: Female

DRUGS (2)
  1. ISOPHANE INSULIN [Concomitant]
     Active Substance: INSULIN NOS
     Indication: Product used for unknown indication
     Dosage: UNK
  2. RYBELSUS [Suspect]
     Active Substance: SEMAGLUTIDE
     Indication: Type 2 diabetes mellitus
     Dosage: UNK
     Dates: start: 20240209

REACTIONS (1)
  - Gastrointestinal stoma complication [Recovered/Resolved]

NARRATIVE: CASE EVENT DATE: 20240211
